FAERS Safety Report 11986399 (Version 4)
Quarter: 2016Q2

REPORT INFORMATION
  Report Type: Report from Study
  Country: ES (occurrence: ES)
  Receive Date: 20160202
  Receipt Date: 20160422
  Transmission Date: 20160815
  Serious: Yes (Other)
  Sender: FDA-Public Use
  Company Number: ES-AMGEN-ESPSL2015090449

PATIENT
  Age: 78 Year
  Sex: Female

DRUGS (4)
  1. PROLIA [Suspect]
     Active Substance: DENOSUMAB
     Dosage: UNK
     Route: 058
  2. FORSTEO [Suspect]
     Active Substance: TERIPARATIDE
     Indication: OSTEOPOROSIS
     Route: 065
  3. PROLIA [Suspect]
     Active Substance: DENOSUMAB
     Dosage: UNK
     Route: 058
  4. PROLIA [Suspect]
     Active Substance: DENOSUMAB
     Indication: OSTEOPOROSIS POSTMENOPAUSAL
     Dosage: 60 MG, Q6MO
     Route: 058
     Dates: start: 20130520, end: 20150213

REACTIONS (16)
  - Oral disorder [Recovering/Resolving]
  - Ear discomfort [Unknown]
  - Pain [Unknown]
  - Pyrexia [Recovered/Resolved]
  - Tooth extraction [Unknown]
  - Jaw disorder [Unknown]
  - Tremor [Recovered/Resolved]
  - Feeding disorder [Unknown]
  - Chills [Recovered/Resolved]
  - Skin discolouration [Unknown]
  - Wrist fracture [Recovered/Resolved]
  - Speech disorder [Unknown]
  - Tooth disorder [Recovered/Resolved]
  - Anxiety [Unknown]
  - Osteonecrosis of jaw [Unknown]
  - Loose tooth [Not Recovered/Not Resolved]

NARRATIVE: CASE EVENT DATE: 2014
